FAERS Safety Report 10046715 (Version 1)
Quarter: 2014Q1

REPORT INFORMATION
  Report Type: Spontaneous
  Country: US (occurrence: None)
  Receive Date: 20140328
  Receipt Date: 20140328
  Transmission Date: 20141002
  Serious: Yes (Life-Threatening, Hospitalization, Other)
  Sender: FDA-Public Use
  Company Number: None

PATIENT
  Age: 35 Year
  Sex: Female
  Weight: 49.9 kg

DRUGS (1)
  1. MUCINEX DM [Suspect]
     Indication: LOWER RESPIRATORY TRACT INFECTION

REACTIONS (6)
  - Tremor [None]
  - Paralysis [None]
  - Palpitations [None]
  - Paraesthesia [None]
  - Fall [None]
  - Movement disorder [None]
